FAERS Safety Report 5290358-6 (Version None)
Quarter: 2007Q2

REPORT INFORMATION
  Report Type: 
  Country: None (occurrence: None)
  Receive Date: 20070402
  Receipt Date: 20070326
  Transmission Date: 20071010
  Serious: Yes (Life-Threatening, Other)
  Sender: FDA-Public Use
  Company Number: E2020-00758-SPO-GB

PATIENT
  Age: 87 Year
  Sex: Male

DRUGS (4)
  1. ARICEPT [Suspect]
     Indication: COGNITIVE DISORDER
     Dosage: 10 MG, 1 IN 1 D, ORAL
     Route: 048
     Dates: start: 20040201, end: 20060601
  2. ARICEPT [Suspect]
     Indication: DEMENTIA
     Dosage: 10 MG, 1 IN 1 D, ORAL
     Route: 048
     Dates: start: 20040201, end: 20060601
  3. CO-DYDRAMOL (PARAMOL-118) [Concomitant]
  4. ACETAMINOPHEN [Concomitant]

REACTIONS (5)
  - ARRHYTHMIA [None]
  - COGNITIVE DISORDER [None]
  - CONDITION AGGRAVATED [None]
  - SYNCOPE [None]
  - VENTRICULAR TACHYCARDIA [None]
